FAERS Safety Report 18209100 (Version 2)
Quarter: 2020Q3

REPORT INFORMATION
  Report Type: Spontaneous
  Country: US (occurrence: US)
  Receive Date: 20200828
  Receipt Date: 20200904
  Transmission Date: 20201103
  Serious: No
  Sender: FDA-Public Use
  Company Number: US-SA-2020SA231463

PATIENT

DRUGS (2)
  1. TOUJEO [Suspect]
     Active Substance: INSULIN GLARGINE
     Dosage: INCREASING 4 UNITS EVERY 3
     Route: 058
  2. TOUJEO [Suspect]
     Active Substance: INSULIN GLARGINE
     Indication: DIABETES MELLITUS
     Dosage: 40 IU
     Route: 058
     Dates: start: 202008

REACTIONS (7)
  - Hyperhidrosis [Unknown]
  - Injection site pruritus [Unknown]
  - Injection site reaction [Unknown]
  - Injection site erythema [Unknown]
  - Product storage error [Unknown]
  - Hypoaesthesia [Unknown]
  - Product preparation error [Unknown]

NARRATIVE: CASE EVENT DATE: 202008
